FAERS Safety Report 8943806 (Version 1)
Quarter: 2012Q4

REPORT INFORMATION
  Report Type: 
  Country: US (occurrence: US)
  Receive Date: 20121203
  Receipt Date: 20121203
  Transmission Date: 20130627
  Serious: No
  Sender: FDA-Public Use
  Company Number: US-ASTRAZENECA-2012SE86286

PATIENT
  Age: 85 Year
  Sex: Male
  Weight: 76.7 kg

DRUGS (2)
  1. SEROQUEL [Suspect]
     Indication: PARKINSON^S DISEASE
     Route: 048
     Dates: start: 20121029
  2. CARBIDOPA-LEVODOPA [Concomitant]
     Indication: PARKINSON^S DISEASE

REACTIONS (3)
  - Tremor [Not Recovered/Not Resolved]
  - Muscle spasms [Not Recovered/Not Resolved]
  - Off label use [Unknown]
